FAERS Safety Report 6461364-0 (Version None)
Quarter: 2009Q4

REPORT INFORMATION
  Report Type: 
  Country: None (occurrence: None)
  Receive Date: 20091130
  Receipt Date: 20091120
  Transmission Date: 20100525
  Serious: Yes (Hospitalization)
  Sender: FDA-Public Use
  Company Number: PL-BRISTOL-MYERS SQUIBB COMPANY-13279476

PATIENT
  Age: 81 Year
  Sex: Female
  Weight: 64 kg

DRUGS (4)
  1. IRBESARTAN [Suspect]
     Indication: HYPERTENSION
     Dates: start: 20050530, end: 20060215
  2. CLOPIDOGREL BISULFATE [Suspect]
     Indication: PROPHYLAXIS
     Dates: start: 20050530
  3. ASPIRIN [Suspect]
     Indication: PROPHYLAXIS
     Dates: start: 20050530
  4. DIGOXIN [Concomitant]

REACTIONS (1)
  - RENAL FAILURE [None]
